FAERS Safety Report 5335294-1 (Version None)
Quarter: 2007Q2

REPORT INFORMATION
  Report Type: 
  Country: None (occurrence: None)
  Receive Date: 20070525
  Receipt Date: 20070516
  Transmission Date: 20071010
  Serious: Yes (Other)
  Sender: FDA-Public Use
  Company Number: US-PFIZER INC-2007029505

PATIENT
  Sex: Female
  Weight: 74.8 kg

DRUGS (11)
  1. CHANTIX [Suspect]
     Indication: EX-SMOKER
     Route: 048
  2. SERTRALINE [Suspect]
     Indication: DEPRESSION
     Route: 048
  3. ZOLOFT [Suspect]
     Indication: DEPRESSION
  4. SYNTHROID [Concomitant]
     Route: 048
  5. IMURAN [Concomitant]
     Route: 048
  6. ALL OTHER THERAPEUTIC PRODUCTS [Concomitant]
     Route: 048
  7. MEDROL [Concomitant]
  8. FLEXERIL [Concomitant]
  9. FEMHRT [Concomitant]
  10. PRILOSEC [Concomitant]
  11. DAYPRO [Concomitant]

REACTIONS (11)
  - ABNORMAL DREAMS [None]
  - ACTIVITIES OF DAILY LIVING IMPAIRED [None]
  - CONSTIPATION [None]
  - DEPRESSION [None]
  - DRUG INEFFECTIVE [None]
  - DRY MOUTH [None]
  - MALAISE [None]
  - NEUROTRANSMITTER LEVEL ALTERED [None]
  - PAIN [None]
  - RHEUMATOID ARTHRITIS [None]
  - SLEEP DISORDER [None]
